FAERS Safety Report 21034114 (Version 1)
Quarter: 2022Q3

REPORT INFORMATION
  Report Type: Spontaneous
  Country: FR (occurrence: FR)
  Receive Date: 20220701
  Receipt Date: 20220701
  Transmission Date: 20221026
  Serious: Yes (Death, Other)
  Sender: FDA-Public Use
  Company Number: None

PATIENT
  Age: 79 Year
  Sex: Male

DRUGS (2)
  1. REVLIMID [Suspect]
     Active Substance: LENALIDOMIDE
     Indication: Diffuse large B-cell lymphoma
     Dosage: SELON PROTOCOLE
     Route: 042
     Dates: start: 20220308, end: 202204
  2. MONJUVI [Suspect]
     Active Substance: TAFASITAMAB-CXIX
     Indication: Diffuse large B-cell lymphoma
     Dosage: SELON PROTOCOLE
     Dates: start: 20220308, end: 20220428

REACTIONS (4)
  - Immunosuppression [Not Recovered/Not Resolved]
  - COVID-19 [Not Recovered/Not Resolved]
  - General physical health deterioration [Fatal]
  - Intentional product use issue [Unknown]

NARRATIVE: CASE EVENT DATE: 20220401
